FAERS Safety Report 8471661-5 (Version None)
Quarter: 2012Q2

REPORT INFORMATION
  Report Type: 
  Country: None (occurrence: None)
  Receive Date: 20120621
  Receipt Date: 20120611
  Transmission Date: 20120825
  Serious: Yes (Hospitalization, Other)
  Sender: FDA-Public Use
  Company Number: 201206022

PATIENT
  Age: 78 Year
  Sex: Male

DRUGS (10)
  1. MULTIVITAMIN (ASCORBIC ACID) [Concomitant]
  2. ASCORBIC ACID [Concomitant]
  3. VITAMIN D [Concomitant]
  4. ATACAND [Concomitant]
  5. PRILOSEC [Concomitant]
  6. RYTHMOL [Concomitant]
  7. DIGOXIN [Concomitant]
  8. VITAMIN E [Concomitant]
  9. TESTIM [Suspect]
     Indication: OSTEOGENESIS IMPERFECTA
     Dosage: SEE IMAGE
     Route: 062
  10. COUMADIN [Concomitant]

REACTIONS (3)
  - PLATELET COUNT DECREASED [None]
  - MULTIPLE MYELOMA [None]
  - OEDEMA PERIPHERAL [None]
